FAERS Safety Report 6477875-8 (Version None)
Quarter: 2009Q4

REPORT INFORMATION
  Report Type: 
  Country: None (occurrence: None)
  Receive Date: 20091207
  Receipt Date: 20091126
  Transmission Date: 20100525
  Serious: Yes (Disabling, Other)
  Sender: FDA-Public Use
  Company Number: ES-JNJFOC-20091201111

PATIENT
  Age: 28 Year
  Sex: Female

DRUGS (1)
  1. REMICADE [Suspect]
     Indication: RHEUMATOID ARTHRITIS
     Dosage: DOSE AND FREQUENCY UNSPECIFIED
     Route: 042
     Dates: start: 20070201, end: 20070803

REACTIONS (2)
  - NEUROPATHY PERIPHERAL [None]
  - PERONEAL NERVE PALSY [None]
